FAERS Safety Report 6441607-X (Version None)
Quarter: 2009Q4

REPORT INFORMATION
  Report Type: 
  Country: None (occurrence: None)
  Receive Date: 20091116
  Receipt Date: 20091103
  Transmission Date: 20100525
  Serious: Yes (Other)
  Sender: FDA-Public Use
  Company Number: US-ELI_LILLY_AND_COMPANY-US200911000992

PATIENT
  Sex: Female

DRUGS (5)
  1. ZYPREXA [Suspect]
     Indication: BIPOLAR DISORDER
     Dosage: 20 MG, DAILY (1/D)
     Route: 065
     Dates: start: 20070101
  2. ZYPREXA [Suspect]
     Dosage: 7.5 MG, DAILY (1/D)
     Route: 065
  3. ZYPREXA [Suspect]
     Dosage: 5 MG, DAILY (1/D)
     Route: 065
  4. CLONAZEPAM [Concomitant]
     Dosage: 1 MG, DAILY (1/D)
     Route: 065
  5. DETROL LA [Concomitant]
     Dosage: 2 MG, DAILY (1/D)
     Route: 065

REACTIONS (15)
  - AUTOMATIC BLADDER [None]
  - BLOOD CHOLESTEROL INCREASED [None]
  - CARDIAC DISORDER [None]
  - DEHYDRATION [None]
  - DEPRESSION [None]
  - EXPIRED DRUG ADMINISTERED [None]
  - FEELING ABNORMAL [None]
  - FEELING COLD [None]
  - HEADACHE [None]
  - HOT FLUSH [None]
  - MICTURITION URGENCY [None]
  - POLLAKIURIA [None]
  - SUICIDAL IDEATION [None]
  - URINE KETONE BODY PRESENT [None]
  - WEIGHT INCREASED [None]
